FAERS Safety Report 10586557 (Version 1)
Quarter: 2014Q4

REPORT INFORMATION
  Report Type: Spontaneous
  Country: US (occurrence: None)
  Receive Date: 20141114
  Receipt Date: 20141114
  Transmission Date: 20150529
  Serious: Yes (Other)
  Sender: FDA-Public Use
  Company Number: None

PATIENT
  Age: 4 Year
  Sex: Male
  Weight: 19.96 kg

DRUGS (1)
  1. MIRALAX [Suspect]
     Active Substance: POLYETHYLENE GLYCOL 3350
     Indication: CONSTIPATION
     Dates: start: 20140901, end: 20141106

REACTIONS (7)
  - Product use issue [None]
  - Emotional disorder [None]
  - Impulsive behaviour [None]
  - Anger [None]
  - Intentional self-injury [None]
  - Aggression [None]
  - Crying [None]

NARRATIVE: CASE EVENT DATE: 20141106
